FAERS Safety Report 11415467 (Version 1)
Quarter: 2015Q3

REPORT INFORMATION
  Report Type: Report from Study
  Country: US (occurrence: US)
  Receive Date: 20150825
  Receipt Date: 20150825
  Transmission Date: 20151125
  Serious: Yes (Hospitalization)
  Sender: FDA-Public Use
  Company Number: US-BAYER-2015-276941

PATIENT
  Age: 54 Year
  Sex: Male
  Weight: 100.68 kg

DRUGS (8)
  1. ADEMPAS [Suspect]
     Active Substance: RIOCIGUAT
     Indication: PULMONARY ARTERIAL HYPERTENSION
     Dosage: 1.5 MG, TID
     Route: 048
  2. ADEMPAS [Suspect]
     Active Substance: RIOCIGUAT
     Indication: PULMONARY ARTERIAL HYPERTENSION
     Dosage: 1.5 MG, TID
     Route: 048
  3. ADEMPAS [Suspect]
     Active Substance: RIOCIGUAT
     Indication: PULMONARY ARTERIAL HYPERTENSION
     Dosage: 2.5 MG, TID
     Route: 048
  4. ADEMPAS [Suspect]
     Active Substance: RIOCIGUAT
     Indication: PULMONARY ARTERIAL HYPERTENSION
     Dosage: 2 MG, TID
     Route: 048
  5. WARFARIN [Concomitant]
     Active Substance: WARFARIN
  6. LOVENOX [Concomitant]
     Active Substance: ENOXAPARIN SODIUM
  7. ADEMPAS [Suspect]
     Active Substance: RIOCIGUAT
     Indication: PULMONARY ARTERIAL HYPERTENSION
     Dosage: 1 MG, TID
     Route: 048
     Dates: start: 20150511
  8. ADEMPAS [Suspect]
     Active Substance: RIOCIGUAT
     Indication: PULMONARY ARTERIAL HYPERTENSION
     Dosage: 2 MG, TID
     Route: 048

REACTIONS (19)
  - Vomiting [Unknown]
  - Abdominal distension [Not Recovered/Not Resolved]
  - Prothrombin time shortened [None]
  - Dysphagia [None]
  - Small intestinal obstruction [None]
  - Abdominal pain upper [None]
  - Intestinal obstruction [Unknown]
  - Dyspnoea exertional [Not Recovered/Not Resolved]
  - Nausea [Unknown]
  - Nausea [None]
  - Dyspnoea [None]
  - Vomiting [None]
  - Abdominal distension [None]
  - Abdominal distension [Recovering/Resolving]
  - Dyspepsia [Not Recovered/Not Resolved]
  - Constipation [None]
  - Oedema peripheral [Not Recovered/Not Resolved]
  - Abdominal pain [Unknown]
  - Diarrhoea [None]

NARRATIVE: CASE EVENT DATE: 201506
